FAERS Safety Report 10010653 (Version 1)
Quarter: 2014Q1

REPORT INFORMATION
  Report Type: Spontaneous
  Country: US (occurrence: None)
  Receive Date: 20140312
  Receipt Date: 20140312
  Transmission Date: 20141002
  Serious: Yes (Other)
  Sender: FDA-Public Use
  Company Number: None

PATIENT
  Age: 64 Year
  Sex: Male
  Weight: 77.3 kg

DRUGS (1)
  1. REMICADE [Suspect]
     Dosage: Q6 WKS
     Route: 042
     Dates: start: 20130713, end: 20140310

REACTIONS (1)
  - Blindness unilateral [None]
